FAERS Safety Report 9354048 (Version 2)
Quarter: 2013Q2

REPORT INFORMATION
  Report Type: Spontaneous
  Country: US (occurrence: None)
  Receive Date: 20130613
  Receipt Date: 20130624
  Transmission Date: 20140414
  Serious: Yes (Hospitalization)
  Sender: FDA-Public Use
  Company Number: 2013STPI000210

PATIENT
  Age: 20 Year
  Sex: Male
  Weight: 33.1 kg

DRUGS (14)
  1. ADAGEN [Suspect]
     Indication: COMBINED IMMUNODEFICIENCY
     Route: 030
  2. GAMMAGARD (IMMUNOGLOBULIN HUMAN NORMAL) [Concomitant]
  3. TRILEPTAL (OXCARBAEPINE) [Concomitant]
  4. DEPAKENE (VALPROATE SODIUM) [Concomitant]
  5. KEPPRA (LEVETIRACETAM) [Concomitant]
  6. CARAFATE (SUCRALFATE) TABLET, 1G [Concomitant]
  7. CENTRUM A TO ZINC (MINERALS NOS, VITAMINS NOS) [Concomitant]
  8. GAVISCON (ALUMINIUM HYDROXIDE, MAGNESIUM CARBONATE) [Concomitant]
  9. LAMICTAL (LAMOTRIGINE) [Concomitant]
  10. FIBER (POLYCARBOPHIL CALCIUM) [Concomitant]
  11. ATIVAN (LORAZEPAM) [Concomitant]
  12. PREVACID (LANSOPRAZOLE) [Concomitant]
  13. REGLAN (METOCLOPRAMIDE HYDROCHLORIDE) [Concomitant]
  14. SODIUM CHLORIDE [Concomitant]

REACTIONS (3)
  - Spinal fusion surgery [None]
  - Scoliosis [None]
  - Condition aggravated [None]
